FAERS Safety Report 8062893-9 (Version None)
Quarter: 2012Q1

REPORT INFORMATION
  Report Type: 
  Country: None (occurrence: None)
  Receive Date: 20120123
  Receipt Date: 20120123
  Transmission Date: 20120608
  Serious: Yes (Other)
  Sender: FDA-Public Use
  Company Number: None

PATIENT
  Age: 47 Year
  Sex: Female
  Weight: 61.234 kg

DRUGS (5)
  1. ETODOLAC [Suspect]
     Indication: NECK PAIN
     Dosage: 1
     Route: 048
     Dates: start: 20111120, end: 20120113
  2. ETODOLAC [Suspect]
     Indication: INFLAMMATION
     Dosage: 1
     Route: 048
     Dates: start: 20111120, end: 20120113
  3. ETODOLAC [Suspect]
     Indication: MUSCULOSKELETAL PAIN
     Dosage: 1
     Route: 048
     Dates: start: 20111120, end: 20120113
  4. ETODOLAC [Suspect]
     Indication: BACK PAIN
     Dosage: 1
     Route: 048
     Dates: start: 20111120, end: 20120113
  5. ETODOLAC [Suspect]
     Indication: SWELLING
     Dosage: 1
     Route: 048
     Dates: start: 20111120, end: 20120113

REACTIONS (7)
  - PALPITATIONS [None]
  - FATIGUE [None]
  - ASTHENIA [None]
  - PARAESTHESIA [None]
  - MALAISE [None]
  - ACTIVITIES OF DAILY LIVING IMPAIRED [None]
  - MYOCARDIAL INFARCTION [None]
